FAERS Safety Report 10760424 (Version 1)
Quarter: 2015Q1

REPORT INFORMATION
  Report Type: Report from Study
  Country: US (occurrence: US)
  Receive Date: 20150204
  Receipt Date: 20150204
  Transmission Date: 20150721
  Serious: Yes (Hospitalization, Other)
  Sender: FDA-Public Use
  Company Number: US-AMGEN-USASL2014099900

PATIENT
  Age: 71 Year
  Sex: Female
  Weight: 73 kg

DRUGS (43)
  1. ISOSORBIDE MONONITRATE. [Concomitant]
     Active Substance: ISOSORBIDE MONONITRATE
     Dosage: 30 MG, QD, IN THE MORNING
     Route: 048
     Dates: start: 20131217
  2. DOCUSATE SODIUM. [Concomitant]
     Active Substance: DOCUSATE SODIUM
     Dosage: 100 MG, BID
  3. PROLIA [Suspect]
     Active Substance: DENOSUMAB
     Indication: OSTEOPOROSIS
     Dosage: UNK
     Route: 065
  4. PRAVASTATIN [Concomitant]
     Active Substance: PRAVASTATIN\PRAVASTATIN SODIUM
     Dosage: 40 MG, QD, EVERY EVENING
     Route: 048
  5. PROAIR HFA [Concomitant]
     Active Substance: ALBUTEROL SULFATE
     Dosage: 90 MUG, ACTUATION INHALER, 2 PUFFS EVERY FOUR TO SIX HOURS
     Dates: start: 20130301
  6. REFRESH                            /00007001/ [Concomitant]
     Dosage: 1%-1% DROPS THERAPY
  7. TORSEMIDE. [Concomitant]
     Active Substance: TORSEMIDE
     Dosage: 5 MG, 2 TABLETS QD
     Route: 048
     Dates: start: 20140505
  8. COREG [Concomitant]
     Active Substance: CARVEDILOL
     Dosage: 6.25 MG, QD
  9. CRANBERRY                          /01512301/ [Concomitant]
     Dosage: 400 MG, QD, TAKE 2 TABLETS OF 300 MG
     Dates: start: 20111007
  10. CYMBALTA [Concomitant]
     Active Substance: DULOXETINE HYDROCHLORIDE
     Dosage: 20 MG, QD
     Route: 048
     Dates: start: 20140804
  11. PANTOPRAZOLE SODIUM [Concomitant]
     Active Substance: PANTOPRAZOLE SODIUM
     Dosage: 40 MG, QD
     Route: 048
     Dates: start: 20140803
  12. PENNSAID [Concomitant]
     Active Substance: DICLOFENAC SODIUM
     Indication: KNEE DEFORMITY
     Dosage: 1.5 %, QD, FOUR TIMES A DAY
     Route: 061
  13. VITAMIN B12 [Concomitant]
     Active Substance: CYANOCOBALAMIN
     Dosage: 1000 MUG, 3 TABLETS, BID
     Route: 048
     Dates: start: 20120904
  14. VITAMIN C [Concomitant]
     Active Substance: ASCORBIC ACID
     Dosage: 500 MUG, QD
     Route: 048
     Dates: start: 20111007
  15. FIBER [Concomitant]
     Active Substance: PSYLLIUM HUSK
     Dosage: 625 MG, 2 TABLETS, QD
     Dates: start: 20111007
  16. LEVOXYL [Concomitant]
     Active Substance: LEVOTHYROXINE SODIUM
     Dosage: 50 MUG, QD
     Route: 048
     Dates: start: 20131217
  17. MAGNESIUM OXIDE. [Concomitant]
     Active Substance: MAGNESIUM OXIDE
     Dosage: 400 MG, QD
     Route: 048
     Dates: start: 20110418
  18. MIRALAX [Concomitant]
     Active Substance: POLYETHYLENE GLYCOL 3350
     Dosage: 17 G, AS NECESSARY
     Route: 048
     Dates: start: 20111007
  19. TRIAMCINOLONE [Concomitant]
     Active Substance: TRIAMCINOLONE
     Dosage: ONLY ONCE
     Route: 061
     Dates: start: 20121105
  20. VITAMIN D3 [Concomitant]
     Active Substance: CHOLECALCIFEROL
     Dosage: 5000 UNIT, QD
     Route: 048
     Dates: start: 20121105
  21. CLOPIDOGREL [Concomitant]
     Active Substance: CLOPIDOGREL BISULFATE
     Dosage: 75 MG, QD
  22. IMDUR [Concomitant]
     Active Substance: ISOSORBIDE MONONITRATE
     Dosage: 30 MG, QD
  23. LEVOTHYROXINE [Concomitant]
     Active Substance: LEVOTHYROXINE
     Dosage: 50 MUG, QD
  24. LANTUS [Concomitant]
     Active Substance: INSULIN GLARGINE
     Indication: DIABETES MELLITUS
     Dosage: 100 UNIT/ML, QHS
     Route: 058
     Dates: start: 20131217
  25. HUMALOG [Concomitant]
     Active Substance: INSULIN LISPRO
     Indication: DIABETES MELLITUS
     Dosage: 100 UNIT/ML, WITH MEALS, 15 UNITS ALONG SLIDING SCALE
     Route: 058
     Dates: start: 20131217
  26. PLAVIX [Concomitant]
     Active Substance: CLOPIDOGREL BISULFATE
     Dosage: 75 MG, QD
     Route: 048
     Dates: start: 20130624
  27. VITAMIN B12 + FOLIC ACID [Concomitant]
     Dosage: 2000 MUG, BID
     Route: 048
  28. COLCRYS [Concomitant]
     Active Substance: COLCHICINE
     Dosage: 0.5 MG, QD
  29. FERROUS SULFATE [Concomitant]
     Active Substance: FERROUS SULFATE\FERROUS SULFATE, DRIED
     Dosage: 325 MG, EVERY OTHER DAY
     Route: 048
     Dates: start: 20121204
  30. HYDROXIZINE HYDROCHLORIDE [Concomitant]
     Indication: PRURITUS
     Dosage: 10 MG, TAKE 1-2 TABLETS, Q6H, AS NECESSARY
     Route: 048
     Dates: start: 20140813
  31. LACTULOSE. [Concomitant]
     Active Substance: LACTULOSE
     Dosage: 10 G, BID, PRN, 30 ML ORALLY
     Route: 048
  32. METHADONE [Concomitant]
     Active Substance: METHADONE HYDROCHLORIDE
     Indication: BACK PAIN
     Dosage: 10 MG, TID AND ONE TABLET AT BEDTIME AS NEEDED
     Route: 048
     Dates: start: 20140310
  33. RANEXA [Concomitant]
     Active Substance: RANOLAZINE
     Dosage: 500 MG, BID
     Route: 048
     Dates: start: 20130729
  34. ACETAMINOPHEN. [Concomitant]
     Active Substance: ACETAMINOPHEN
     Dosage: 650 MG, Q6H, AS NEEDED.
  35. DEMADEX [Concomitant]
     Active Substance: TORSEMIDE
     Dosage: 5 MG, QD
  36. FLUTICASONE [Concomitant]
     Active Substance: FLUTICASONE\FLUTICASONE PROPIONATE
     Dosage: 50 MUG, INHALE 2 SPRAYS BY INTRANASAL ROUTE INEACH NOSTRIL
     Dates: start: 20130624
  37. LIDOCAINE. [Concomitant]
     Active Substance: LIDOCAINE
     Indication: PAIN
     Dosage: 700 MG, PATCH, QD
     Route: 062
     Dates: start: 20131227
  38. CALCIUM [Concomitant]
     Active Substance: CALCIUM
     Dosage: 500 MG, QD
     Route: 048
     Dates: start: 20120220
  39. CARVEDILOL. [Concomitant]
     Active Substance: CARVEDILOL
     Dosage: 12.5 MG, (TAKE 0.5 TABLET), WITH FOOD
     Route: 048
     Dates: start: 20140305
  40. COMBIVENT [Concomitant]
     Active Substance: ALBUTEROL SULFATE\IPRATROPIUM BROMIDE
     Dosage: 18 MUG, INHALE 2 PUFF, ROUTE FOUR TIMES EVERY DAY AS NECESSARY
     Dates: start: 20110509
  41. NITROGLYCERIN. [Concomitant]
     Active Substance: NITROGLYCERIN
     Indication: CHEST PAIN
     Dosage: 0.4 MG, AS NECESSARY
     Route: 060
  42. OXYCODONE [Concomitant]
     Active Substance: OXYCODONE
     Indication: PAIN
     Dosage: 15 MG, Q4H, AS NEEDED
     Route: 048
     Dates: start: 20140310
  43. ACETONIDE DE FLUCLOROLONE [Concomitant]
     Indication: SKIN DISORDER
     Dosage: UNK UNK, QD, THIN FILM TO THE AFFECTED SKIN AREAS
     Route: 061

REACTIONS (35)
  - Pruritus [Unknown]
  - Pain [Unknown]
  - Iron deficiency anaemia [Unknown]
  - Dyspnoea [Unknown]
  - Malaise [Unknown]
  - Pyrexia [Recovered/Resolved]
  - Lymphadenopathy [Unknown]
  - Type 2 diabetes mellitus [Unknown]
  - Paraganglion neoplasm [Unknown]
  - Oedema [Unknown]
  - Lethargy [Not Recovered/Not Resolved]
  - Back pain [Unknown]
  - Fatigue [Unknown]
  - Lumbar spinal stenosis [Unknown]
  - Abdominal pain [Not Recovered/Not Resolved]
  - Mental status changes [Unknown]
  - Cough [Unknown]
  - Knee deformity [Unknown]
  - Coronary artery disease [Unknown]
  - Renal disorder [Unknown]
  - Altered state of consciousness [Unknown]
  - Leukocytosis [Recovering/Resolving]
  - Rash [Unknown]
  - Hypothyroidism [Unknown]
  - Cellulitis [Unknown]
  - VIIth nerve paralysis [Unknown]
  - Chest pain [Unknown]
  - Peripheral swelling [Not Recovered/Not Resolved]
  - Epistaxis [Unknown]
  - Chronic obstructive pulmonary disease [Unknown]
  - Angina pectoris [Unknown]
  - Sepsis [Unknown]
  - Hyperlipidaemia [Unknown]
  - Peripheral venous disease [Unknown]
  - Umbilical hernia [Unknown]

NARRATIVE: CASE EVENT DATE: 20070507
